FAERS Safety Report 8167881-X (Version None)
Quarter: 2012Q1

REPORT INFORMATION
  Report Type: 
  Country: None (occurrence: None)
  Receive Date: 20120227
  Receipt Date: 20120215
  Transmission Date: 20120608
  Serious: Yes (Death)
  Sender: FDA-Public Use
  Company Number: DE-ROCHE-1035524

PATIENT
  Sex: Male
  Weight: 78 kg

DRUGS (6)
  1. RAMIPRIL [Concomitant]
     Route: 048
  2. CITALOPRAM HYDROBROMIDE [Concomitant]
     Indication: DEPRESSION
     Route: 048
  3. CISPLATIN [Suspect]
     Indication: BRONCHIAL CARCINOMA
     Route: 042
     Dates: start: 20111018, end: 20111212
  4. VINORELBINE TARTRATE [Suspect]
     Indication: BRONCHIAL CARCINOMA
     Route: 042
     Dates: start: 20111018, end: 20111212
  5. AVASTIN [Suspect]
     Route: 042
     Dates: start: 20111019, end: 20111213
  6. AVASTIN [Suspect]
     Indication: BRONCHIAL CARCINOMA
     Route: 042
     Dates: start: 20111018

REACTIONS (11)
  - COUGH [None]
  - DEATH [None]
  - DIARRHOEA [None]
  - PAIN IN EXTREMITY [None]
  - PRODUCTIVE COUGH [None]
  - ABDOMINAL PAIN UPPER [None]
  - FATIGUE [None]
  - NASOPHARYNGITIS [None]
  - CONSTIPATION [None]
  - PYREXIA [None]
  - HEADACHE [None]
